FAERS Safety Report 10850458 (Version 2)
Quarter: 2015Q1

REPORT INFORMATION
  Report Type: Spontaneous
  Country: US (occurrence: US)
  Receive Date: 20150222
  Receipt Date: 20150222
  Transmission Date: 20150721
  Serious: No
  Sender: FDA-Public Use
  Company Number: US-ALLERGAN-1404807US

PATIENT
  Age: 60 Year
  Sex: Female

DRUGS (7)
  1. BOTOX [Suspect]
     Active Substance: ONABOTULINUMTOXINA
     Indication: MEIGE^S SYNDROME
     Dosage: 160 UNITS, SINGLE
     Dates: start: 20140221, end: 20140221
  2. ZAPONEX [Concomitant]
     Active Substance: CLOZAPINE
     Indication: MEIGE^S SYNDROME
  3. QVARR [Concomitant]
     Indication: MEIGE^S SYNDROME
  4. BOTOX [Suspect]
     Active Substance: ONABOTULINUMTOXINA
     Indication: BLEPHAROSPASM
  5. BOTOX [Suspect]
     Active Substance: ONABOTULINUMTOXINA
     Indication: DYSTONIA
  6. METFORMIN [Concomitant]
     Active Substance: METFORMIN HYDROCHLORIDE
     Indication: DIABETES MELLITUS
  7. XEOMIN [Suspect]
     Active Substance: INCOBOTULINUMTOXINA
     Indication: MEIGE^S SYNDROME
     Dosage: 80 UNITS, SINGLE
     Dates: start: 20140221, end: 20140221

REACTIONS (14)
  - Discomfort [Unknown]
  - Dyspnoea [Recovering/Resolving]
  - Visual impairment [Unknown]
  - Off label use [Unknown]
  - Vision blurred [Unknown]
  - Therapeutic response unexpected [Not Recovered/Not Resolved]
  - Asthenia [Recovering/Resolving]
  - Feeling abnormal [Unknown]
  - Wrong technique in drug usage process [Unknown]
  - Eyelid thickening [Unknown]
  - Influenza like illness [Recovered/Resolved]
  - Palpitations [Unknown]
  - Blood pressure increased [Unknown]
  - Dysstasia [Recovering/Resolving]
